FAERS Safety Report 15221175 (Version 1)
Quarter: 2018Q3

REPORT INFORMATION
  Report Type: Spontaneous
  Country: US (occurrence: US)
  Receive Date: 20180731
  Receipt Date: 20180731
  Transmission Date: 20181010
  Serious: Yes (Hospitalization, Other)
  Sender: FDA-Public Use
  Company Number: US-ELI_LILLY_AND_COMPANY-US201807010393

PATIENT
  Sex: Female
  Weight: 39 kg

DRUGS (1)
  1. FORTEO [Suspect]
     Active Substance: TERIPARATIDE
     Indication: OSTEOPOROSIS
     Dosage: UNK UNK, UNKNOWN
     Route: 065
     Dates: end: 201802

REACTIONS (6)
  - Adult failure to thrive [Unknown]
  - Fall [Recovering/Resolving]
  - Limb injury [Unknown]
  - Localised infection [Unknown]
  - Head injury [Unknown]
  - Malaise [Unknown]
